FAERS Safety Report 8882097 (Version 1)
Quarter: 2012Q4

REPORT INFORMATION
  Report Type: 
  Country: GB (occurrence: GB)
  Receive Date: 20121102
  Receipt Date: 20121102
  Transmission Date: 20130627
  Serious: Yes (Other)
  Sender: FDA-Public Use
  Company Number: GB-ASTRAZENECA-2012SE82592

PATIENT
  Age: 58 Year
  Sex: Female

DRUGS (2)
  1. ROPIVACAINE [Suspect]
     Indication: EPIDURAL ANALGESIA
     Route: 008
  2. BUPIVACAINE [Suspect]
     Indication: EPIDURAL ANALGESIA
     Dosage: at rate of 10 mls/hour
     Route: 008

REACTIONS (3)
  - Hypoaesthesia [Recovered/Resolved]
  - Hypoaesthesia [Recovered/Resolved]
  - Muscular weakness [Recovered/Resolved]
